FAERS Safety Report 9689980 (Version 1)
Quarter: 2013Q4

REPORT INFORMATION
  Report Type: Spontaneous
  Country: RS (occurrence: RS)
  Receive Date: 20131115
  Receipt Date: 20131115
  Transmission Date: 20140711
  Serious: Yes (Other)
  Sender: FDA-Public Use
  Company Number: RS-ASTRAZENECA-2013SE83098

PATIENT
  Sex: Male

DRUGS (1)
  1. SYMBICORT TBH [Suspect]
     Route: 055

REACTIONS (1)
  - Dyspnoea [Recovered/Resolved]
